FAERS Safety Report 15507989 (Version 1)
Quarter: 2018Q4

REPORT INFORMATION
  Report Type: Spontaneous
  Country: DE (occurrence: DE)
  Receive Date: 20181016
  Receipt Date: 20181016
  Transmission Date: 20190205
  Serious: Yes (Other)
  Sender: FDA-Public Use
  Company Number: DE-ALEXION-A201813469

PATIENT
  Age: 73 Year
  Sex: Male

DRUGS (2)
  1. SOLIRIS [Suspect]
     Active Substance: ECULIZUMAB
     Indication: OFF LABEL USE
     Dosage: 900 MG, Q2W
     Route: 065
  2. SOLIRIS [Suspect]
     Active Substance: ECULIZUMAB
     Indication: COLD TYPE HAEMOLYTIC ANAEMIA
     Dosage: 600 MG, QW
     Route: 065

REACTIONS (2)
  - Off label use [Not Recovered/Not Resolved]
  - Pneumonia [Recovered/Resolved]
